FAERS Safety Report 5181954-5 (Version None)
Quarter: 2006Q4

REPORT INFORMATION
  Report Type: 
  Country: None (occurrence: None)
  Receive Date: 20061220
  Receipt Date: 20060404
  Transmission Date: 20070319
  Serious: No
  Sender: FDA-Public Use
  Company Number: US-GLAXOSMITHKLINE-A0600527A

PATIENT
  Sex: Male

DRUGS (1)
  1. COMMIT [Suspect]
     Dates: start: 20040601

REACTIONS (2)
  - DENTAL CARIES [None]
  - INTENTIONAL DRUG MISUSE [None]
